FAERS Safety Report 8920284 (Version 4)
Quarter: 2013Q2

REPORT INFORMATION
  Report Type: Spontaneous
  Country: US (occurrence: US)
  Receive Date: 20121121
  Receipt Date: 20130610
  Transmission Date: 20140414
  Serious: Yes (Hospitalization)
  Sender: FDA-Public Use
  Company Number: US-TEVA-371212USA

PATIENT
  Age: 60 Year
  Sex: Female
  Weight: 102.15 kg

DRUGS (4)
  1. PROAIR HFA [Suspect]
     Indication: ASTHMA
     Dosage: 4 TIMES DAILY AS NEEDED
     Route: 055
  2. CLARINEX [Concomitant]
     Indication: RHINITIS ALLERGIC
     Dosage: 5 MILLIGRAM DAILY;
     Route: 048
  3. LEVOTHYROXINE [Concomitant]
     Indication: HYPOTHYROIDISM
     Dosage: 125 MICROGRAM DAILY;
     Route: 048
  4. NASONEX [Concomitant]
     Indication: RHINITIS ALLERGIC
     Dosage: 2 SPRAYS PER NOSTRIL AS NEEDED
     Route: 045

REACTIONS (7)
  - Diverticulitis [Unknown]
  - Large intestine perforation [Unknown]
  - Colon operation [Unknown]
  - Delayed recovery from anaesthesia [Recovering/Resolving]
  - Memory impairment [Unknown]
  - Dizziness [Not Recovered/Not Resolved]
  - Vertigo [Not Recovered/Not Resolved]
